FAERS Safety Report 6853907-X (Version None)
Quarter: 2010Q3

REPORT INFORMATION
  Report Type: 
  Country: None (occurrence: None)
  Receive Date: 20100717
  Receipt Date: 20071226
  Transmission Date: 20110219
  Serious: No
  Sender: FDA-Public Use
  Company Number: US-PFIZER INC-2007108474

PATIENT
  Sex: Female
  Weight: 67.6 kg

DRUGS (5)
  1. CHANTIX [Suspect]
     Indication: SMOKING CESSATION THERAPY
     Dates: start: 20071212, end: 20071223
  2. GEODON [Concomitant]
  3. TRAZODONE HYDROCHLORIDE [Concomitant]
  4. TRILEPTAL [Concomitant]
  5. ZYRTEC [Concomitant]

REACTIONS (6)
  - DIZZINESS [None]
  - FATIGUE [None]
  - FEELING ABNORMAL [None]
  - MALAISE [None]
  - SOMNOLENCE [None]
  - VOMITING [None]
